FAERS Safety Report 8238267-4 (Version None)
Quarter: 2012Q1

REPORT INFORMATION
  Report Type: 
  Country: None (occurrence: None)
  Receive Date: 20120327
  Receipt Date: 20120322
  Transmission Date: 20120608
  Serious: Yes (Hospitalization, Other)
  Sender: FDA-Public Use
  Company Number: GR-JNJFOC-20110901164

PATIENT
  Sex: Male
  Weight: 97 kg

DRUGS (15)
  1. VELCADE [Suspect]
     Route: 042
     Dates: start: 20110101
  2. VELCADE [Suspect]
     Route: 042
     Dates: start: 20110726
  3. VELCADE [Suspect]
     Indication: MULTIPLE MYELOMA
     Dosage: ON DAY 1, 4, 8 AND 11
     Route: 042
     Dates: start: 20110506, end: 20110520
  4. VELCADE [Suspect]
     Route: 042
     Dates: start: 20110101
  5. DEXAMETHASONE [Suspect]
     Indication: MULTIPLE MYELOMA
     Route: 048
     Dates: start: 20110506
  6. DEXAMETHASONE [Suspect]
     Route: 048
     Dates: start: 20110804
  7. DEXAMETHASONE [Suspect]
     Route: 042
     Dates: start: 20110727, end: 20110815
  8. VELCADE [Suspect]
     Route: 042
     Dates: start: 20110612
  9. VELCADE [Suspect]
     Route: 042
     Dates: start: 20110101
  10. DEXAMETHASONE [Suspect]
     Route: 042
     Dates: start: 20110506, end: 20110519
  11. DOXORUBICIN HCL [Suspect]
     Indication: MULTIPLE MYELOMA
     Route: 042
     Dates: start: 20110726
  12. DOXORUBICIN HCL [Suspect]
     Route: 042
     Dates: start: 20110612, end: 20110612
  13. DEXAMETHASONE [Suspect]
     Route: 042
     Dates: start: 20110704, end: 20110725
  14. DEXAMETHASONE [Suspect]
     Route: 042
     Dates: start: 20110612, end: 20110703
  15. DOXORUBICIN HCL [Suspect]
     Route: 042
     Dates: start: 20110506, end: 20110520

REACTIONS (5)
  - BLOOD CREATININE INCREASED [None]
  - URINE OUTPUT DECREASED [None]
  - LOWER RESPIRATORY TRACT INFECTION [None]
  - HYPOXIA [None]
  - UPPER RESPIRATORY TRACT INFECTION [None]
